FAERS Safety Report 4601179-9 (Version None)
Quarter: 2005Q1

REPORT INFORMATION
  Report Type: 
  Country: None (occurrence: None)
  Receive Date: 20050308
  Receipt Date: 20050225
  Transmission Date: 20050727
  Serious: Yes (Hospitalization)
  Sender: FDA-Public Use
  Company Number: PHEH2005US02486

PATIENT
  Age: 74 Year
  Sex: Female

DRUGS (2)
  1. PROCEDURE THERAPEUTIC NOS [Concomitant]
  2. ZOMETA [Suspect]
     Indication: CARCINOID TUMOUR
     Dosage: 4MG QMO
     Route: 042
     Dates: start: 20040901

REACTIONS (2)
  - BLOOD PARATHYROID HORMONE INCREASED [None]
  - HYPOCALCAEMIA [None]
